FAERS Safety Report 21195818 (Version 9)
Quarter: 2022Q4

REPORT INFORMATION
  Report Type: Report from Study
  Country: CA (occurrence: CA)
  Receive Date: 20220810
  Receipt Date: 20221027
  Transmission Date: 20230113
  Serious: Yes (Other)
  Sender: FDA-Public Use
  Company Number: CA-BRISTOL-MYERS SQUIBB COMPANY-2022-062774

PATIENT
  Age: 73 Year
  Sex: Male
  Weight: 76.60 kg

DRUGS (5)
  1. OPDIVO [Suspect]
     Active Substance: NIVOLUMAB
     Indication: Bladder cancer
     Dosage: 2 WEEKS
     Route: 042
  2. OPDIVO [Suspect]
     Active Substance: NIVOLUMAB
     Indication: Transitional cell carcinoma
     Dosage: 2 WEEKS?31-0CT-2024
     Route: 042
     Dates: start: 20220621
  3. OPDIVO [Suspect]
     Active Substance: NIVOLUMAB
     Dosage: 2 WEEKS
     Route: 042
     Dates: start: 20220621
  4. OPDIVO [Suspect]
     Active Substance: NIVOLUMAB
     Route: 065
     Dates: start: 20220802
  5. RISEDRONATE SODIUM [Concomitant]
     Active Substance: RISEDRONATE SODIUM
     Indication: Product used for unknown indication
     Route: 065

REACTIONS (7)
  - Blood pressure systolic increased [Recovered/Resolved]
  - Medication error [Unknown]
  - Lipase increased [Unknown]
  - Blood pressure diastolic increased [Recovered/Resolved]
  - Product dose omission issue [Unknown]
  - Off label use [Unknown]
  - Full blood count abnormal [Unknown]

NARRATIVE: CASE EVENT DATE: 20220101
